FAERS Safety Report 17690371 (Version 2)
Quarter: 2020Q2

REPORT INFORMATION
  Report Type: Report from Study
  Country: CO (occurrence: CO)
  Receive Date: 20200421
  Receipt Date: 20200515
  Transmission Date: 20200714
  Serious: Yes (Hospitalization, Other)
  Sender: FDA-Public Use
  Company Number: CO-AMGEN-COLSL2020064655

PATIENT
  Age: 58 Year
  Sex: Female

DRUGS (1)
  1. VECTIBIX [Suspect]
     Active Substance: PANITUMUMAB
     Indication: COLORECTAL CANCER METASTATIC
     Dosage: 420 MILLIGRAM, EVERY 21 DAYS
     Route: 042
     Dates: start: 20190326

REACTIONS (3)
  - Urinary tract infection [Recovered/Resolved]
  - Off label use [Unknown]
  - Acne [Recovered/Resolved]

NARRATIVE: CASE EVENT DATE: 20190326
